FAERS Safety Report 18259982 (Version 1)
Quarter: 2020Q3

REPORT INFORMATION
  Report Type: Report from Study
  Country: MX (occurrence: MX)
  Receive Date: 20200912
  Receipt Date: 20200912
  Transmission Date: 20201103
  Serious: Yes (Death)
  Sender: FDA-Public Use
  Company Number: PHHY2019MX079152

PATIENT
  Sex: Female
  Weight: 53 kg

DRUGS (1)
  1. ENTRESTO [Suspect]
     Active Substance: SACUBITRIL\VALSARTAN
     Indication: CARDIAC FAILURE
     Dosage: 0.5 DF, BID (100 MG)
     Route: 048

REACTIONS (3)
  - Wrong technique in product usage process [Unknown]
  - Product prescribing error [Unknown]
  - Death [Fatal]
